FAERS Safety Report 8999899 (Version 1)
Quarter: 2013Q1

REPORT INFORMATION
  Report Type: Report from Study
  Country: US (occurrence: US)
  Receive Date: 20130102
  Receipt Date: 20130102
  Transmission Date: 20140127
  Serious: No
  Sender: FDA-Public Use
  Company Number: US-VERTEX PHARMACEUTICALS INC.-2012-026794

PATIENT
  Sex: Male

DRUGS (6)
  1. VX-950 (TELAPREVIR) [Suspect]
     Indication: HEPATITIS C
     Dosage: 750 MG, TID
     Route: 048
     Dates: start: 20120328
  2. RIBAPAK [Suspect]
     Indication: HEPATITIS C
     Dosage: 600MG QAM, 400MG QPM
     Dates: start: 20121009
  3. PEGASYS [Suspect]
     Indication: HEPATITIS C
     Dosage: 180 ?G, QW
     Route: 058
     Dates: start: 20121009
  4. BENADRYL                           /00000402/ [Concomitant]
     Route: 048
  5. BENADRYL                           /00000402/ [Concomitant]
     Dosage: UNK
     Route: 061
  6. NEOSPORIN                          /00038301/ [Concomitant]

REACTIONS (1)
  - Pruritus [Unknown]
